FAERS Safety Report 7378030-X (Version None)
Quarter: 2011Q1

REPORT INFORMATION
  Report Type: 
  Country: None (occurrence: None)
  Receive Date: 20110328
  Receipt Date: 20110321
  Transmission Date: 20110831
  Serious: Yes (Hospitalization, Other)
  Sender: FDA-Public Use
  Company Number: US-B.I. PHARMACEUTICALS,INC./RIDGEFIELD-2011-BP-02174BP

PATIENT
  Age: 71 Year
  Sex: Female

DRUGS (2)
  1. PRADAXA [Suspect]
     Indication: ATRIAL FIBRILLATION
     Dosage: 300 MG
     Route: 048
     Dates: start: 20110131, end: 20110213
  2. PRADAXA [Suspect]
     Indication: PULMONARY EMBOLISM

REACTIONS (8)
  - ISCHAEMIA [None]
  - GASTROINTESTINAL HAEMORRHAGE [None]
  - HAEMATURIA [None]
  - HAEMATOCHEZIA [None]
  - HAEMORRHAGE [None]
  - HAEMORRHOIDS [None]
  - ANOGENITAL WARTS [None]
  - OCCULT BLOOD POSITIVE [None]
